FAERS Safety Report 10048470 (Version 2)
Quarter: 2014Q1

REPORT INFORMATION
  Report Type: Spontaneous
  Country: US (occurrence: US)
  Receive Date: 20140331
  Receipt Date: 20140331
  Transmission Date: 20141002
  Serious: Yes (Other)
  Sender: FDA-Public Use
  Company Number: US-GE HEALTHCARE MEDICAL DIAGNOSTICS-OSCN-PR-0705L-0210

PATIENT
  Age: 11 Year
  Sex: Male

DRUGS (30)
  1. OMNISCAN [Suspect]
     Indication: PRODUCT USED FOR UNKNOWN INDICATION
     Dosage: DOSE NOT REPORTED
     Route: 042
  2. OMNISCAN [Suspect]
     Indication: DIAGNOSTIC PROCEDURE
  3. GADOPENTETATE [Suspect]
  4. GADOVERSETAMIDE [Suspect]
  5. GADOTERIDOL [Suspect]
  6. GADOBENIC ACID [Suspect]
  7. DOXORUBICIN (ADRIAMYCIN) [Concomitant]
     Indication: DIFFUSE LARGE B-CELL LYMPHOMA
  8. METHOTREXATE [Concomitant]
     Indication: DIFFUSE LARGE B-CELL LYMPHOMA
  9. VINCRISTINE [Concomitant]
     Indication: EWING^S SARCOMA
  10. 6-MERCAPTOPURINE [Concomitant]
     Indication: DIFFUSE LARGE B-CELL LYMPHOMA
  11. FERROUS SULFATE [Concomitant]
     Indication: RENAL FAILURE CHRONIC
  12. EPOETIN ALFA (EPOGEN) [Concomitant]
     Indication: ANAEMIA
  13. CALCIUM CARBONATE [Concomitant]
     Indication: RENAL OSTEODYSTROPHY
  14. CALCITRIOL [Concomitant]
     Indication: RENAL OSTEODYSTROPHY
  15. SODIUM BICARBONATE [Concomitant]
     Indication: RENAL FAILURE CHRONIC
  16. DACTINOMYCIN (ACTINOMYCIN D) [Concomitant]
     Indication: EWING^S SARCOMA
  17. CYCLOPHOSPHAMIDE [Concomitant]
     Indication: EWING^S SARCOMA
  18. IFOSFAMIDE [Concomitant]
     Indication: EWING^S SARCOMA
  19. ETOPOSIDE [Concomitant]
     Indication: EWING^S SARCOMA
  20. UNSPECIFIED CALCIUM SUPPLEMENTS [Concomitant]
     Indication: HYPOCALCAEMIA
  21. UNSPECIFIED CALCIUM SUPPLEMENTS [Concomitant]
     Indication: HUNGRY BONE SYNDROME
  22. ERGOCALCIFEROL (VITAMIN D) [Concomitant]
     Indication: HYPOCALCAEMIA
  23. ERGOCALCIFEROL (VITAMIN D) [Concomitant]
     Indication: HUNGRY BONE SYNDROME
  24. GABAPENTIN (NEURONTIN) [Concomitant]
     Indication: CONVULSION
  25. VALPROATE SEMISODIUM (DEPAKOTE) [Concomitant]
     Indication: CONVULSION
  26. AMITRIPTYLINE [Concomitant]
     Indication: CONVULSION
  27. ASTRAMORPH PF (LOW DIALYSATE CALCIUM) [Concomitant]
     Indication: HYPERCALCAEMIA
  28. PAMIDRONATE DISODIUM (PAMIDRONATE) [Concomitant]
     Indication: HYPERCALCAEMIA
  29. CALCITONIN [Concomitant]
     Indication: HYPERCALCAEMIA
  30. UNSPECIFIED STEROIDS [Concomitant]
     Indication: HYPERCALCAEMIA

REACTIONS (1)
  - Nephrogenic systemic fibrosis [Unknown]
